FAERS Safety Report 15919277 (Version 4)
Quarter: 2019Q2

REPORT INFORMATION
  Report Type: Spontaneous
  Country: JP (occurrence: JP)
  Receive Date: 20190205
  Receipt Date: 20190617
  Transmission Date: 20190711
  Serious: Yes (Death)
  Sender: FDA-Public Use
  Company Number: JP-ROCHE-2259527

PATIENT
  Age: 52 Year
  Sex: Male

DRUGS (3)
  1. MAOTO [Concomitant]
     Active Substance: HERBALS
     Indication: INFLUENZA
     Route: 048
     Dates: start: 20190124, end: 20190124
  2. XOFLUZA [Suspect]
     Active Substance: BALOXAVIR MARBOXIL
     Indication: INFLUENZA
     Route: 048
     Dates: start: 20190124, end: 20190124
  3. CALONAL [Concomitant]
     Active Substance: ACETAMINOPHEN
     Indication: INFLUENZA
     Route: 048
     Dates: start: 20190124, end: 20190124

REACTIONS (1)
  - Cardiac death [Fatal]

NARRATIVE: CASE EVENT DATE: 20190125
